FAERS Safety Report 8187955-7 (Version None)
Quarter: 2012Q1

REPORT INFORMATION
  Report Type: 
  Country: None (occurrence: None)
  Receive Date: 20120306
  Receipt Date: 20120229
  Transmission Date: 20120608
  Serious: Yes (Other)
  Sender: FDA-Public Use
  Company Number: JP-GLAXOSMITHKLINE-B0785273A

PATIENT
  Sex: Male

DRUGS (2)
  1. DUTASTERIDE [Suspect]
     Indication: BENIGN PROSTATIC HYPERPLASIA
     Route: 048
     Dates: start: 20120221, end: 20120201
  2. DUTASTERIDE [Suspect]
     Route: 048
     Dates: start: 20120201

REACTIONS (3)
  - ECZEMA [None]
  - MALAISE [None]
  - DEPRESSED LEVEL OF CONSCIOUSNESS [None]
